FAERS Safety Report 8138436-8 (Version None)
Quarter: 2012Q1

REPORT INFORMATION
  Report Type: 
  Country: None (occurrence: None)
  Receive Date: 20120215
  Receipt Date: 20120131
  Transmission Date: 20120608
  Serious: Yes (Life-Threatening, Hospitalization)
  Sender: FDA-Public Use
  Company Number: BR-ROCHE-1035733

PATIENT
  Age: 26 Year
  Sex: Female

DRUGS (6)
  1. ACTEMRA [Suspect]
     Indication: JUVENILE ARTHRITIS
  2. FERROUS SULFATE TAB [Concomitant]
  3. CALCIUM CARBONATE [Concomitant]
  4. FLUCONAZOLE [Concomitant]
  5. LEXOTAN [Concomitant]
  6. PANTOPRAZOLE [Concomitant]

REACTIONS (2)
  - BRAIN DEATH [None]
  - ACUTE HEPATIC FAILURE [None]
